FAERS Safety Report 6818004-8 (Version None)
Quarter: 2010Q3

REPORT INFORMATION
  Report Type: 
  Country: None (occurrence: None)
  Receive Date: 20100706
  Receipt Date: 20100629
  Transmission Date: 20110219
  Serious: Yes (Other)
  Sender: FDA-Public Use
  Company Number: GXKR2010DE07149

PATIENT
  Age: 67 Year
  Sex: Male
  Weight: 82 kg

DRUGS (6)
  1. FLUOROURACIL [Suspect]
     Dosage: UNK
     Route: 042
     Dates: start: 20081201, end: 20100401
  2. LEUCOVORIN CALCIUM (NGX) [Suspect]
     Dosage: UNK
     Route: 042
     Dates: start: 20081201, end: 20100401
  3. FOLINIC ACID ^TEVA^ [Suspect]
     Indication: COLON CANCER
     Dosage: UNK
     Route: 042
     Dates: start: 20071101, end: 20080401
  4. BEVACIZUMAB [Suspect]
     Dosage: UNK
     Route: 042
     Dates: start: 20081201, end: 20100401
  5. ELOXATIN [Suspect]
     Indication: COLON CANCER
     Dosage: UNK
     Route: 042
     Dates: start: 20071101, end: 20080401
  6. FLUOROURACIL [Suspect]
     Indication: COLON CANCER
     Dosage: UNK
     Route: 042
     Dates: start: 20071101, end: 20080401

REACTIONS (2)
  - ALVEOLITIS [None]
  - INTERSTITIAL LUNG DISEASE [None]
